FAERS Safety Report 5606506-1 (Version None)
Quarter: 2008Q1

REPORT INFORMATION
  Report Type: 
  Country: None (occurrence: None)
  Receive Date: 20080129
  Receipt Date: 20080123
  Transmission Date: 20080703
  Serious: Yes (Other)
  Sender: FDA-Public Use
  Company Number: A0704908A

PATIENT
  Age: 47 Year
  Sex: Female

DRUGS (8)
  1. VALTREX [Suspect]
     Indication: GENITAL HERPES
     Dosage: 750MG TWICE PER DAY
     Route: 048
     Dates: start: 20000101
  2. IMIPRAMINE [Concomitant]
  3. BUSPIRONE HCL [Concomitant]
  4. MULTI-VITAMIN [Concomitant]
  5. FISH OIL [Concomitant]
  6. GLUCOSAMINE [Concomitant]
  7. VITAMIN D [Concomitant]
  8. LIPITOR [Concomitant]

REACTIONS (6)
  - ABNORMAL FAECES [None]
  - COELIAC DISEASE [None]
  - ENTERITIS [None]
  - GASTRIC DISORDER [None]
  - GLUCOSE TOLERANCE IMPAIRED [None]
  - HEPATIC ENZYME INCREASED [None]
